FAERS Safety Report 8773237 (Version 2)
Quarter: 2014Q4

REPORT INFORMATION
  Report Type: Spontaneous
  Country: US (occurrence: US)
  Receive Date: 20120907
  Receipt Date: 20141201
  Transmission Date: 20150529
  Serious: No
  Sender: FDA-Public Use
  Company Number: US-009507513-1209USA000751

PATIENT
  Sex: Male
  Weight: 90.7 kg

DRUGS (2)
  1. PROPECIA [Suspect]
     Active Substance: FINASTERIDE
     Indication: ANDROGENETIC ALOPECIA
     Dosage: UNK
     Dates: start: 1998
  2. PROSCAR [Suspect]
     Active Substance: FINASTERIDE
     Indication: ALOPECIA
     Dosage: 5 MG, UNK
     Route: 048
     Dates: start: 2000, end: 2007

REACTIONS (10)
  - Sexual dysfunction [Unknown]
  - Wrong technique in drug usage process [Unknown]
  - Cognitive disorder [Unknown]
  - Drug administration error [Unknown]
  - Herpes simplex [Unknown]
  - Libido decreased [Unknown]
  - Prostatitis [Unknown]
  - Sleep disorder [Unknown]
  - Nasal septal operation [Unknown]
  - Erectile dysfunction [Unknown]

NARRATIVE: CASE EVENT DATE: 2000
